FAERS Safety Report 14371353 (Version 6)
Quarter: 2018Q3

REPORT INFORMATION
  Report Type: Report from Study
  Country: CO (occurrence: CO)
  Receive Date: 20180110
  Receipt Date: 20180730
  Transmission Date: 20181010
  Serious: Yes (Death, Hospitalization, Other)
  Sender: FDA-Public Use
  Company Number: PHHY2017CO026166

PATIENT
  Age: 75 Year
  Sex: Male
  Weight: 63 kg

DRUGS (10)
  1. ATORVASTATIN [Suspect]
     Active Substance: ATORVASTATIN
     Indication: PRODUCT USED FOR UNKNOWN INDICATION
     Route: 065
  2. ZOPICLONE [Concomitant]
     Active Substance: ZOPICLONE
     Indication: PRODUCT USED FOR UNKNOWN INDICATION
     Route: 065
  3. TRAMADOL. [Concomitant]
     Active Substance: TRAMADOL
     Indication: PRODUCT USED FOR UNKNOWN INDICATION
     Route: 065
  4. BIOCALCIO [Concomitant]
     Indication: PRODUCT USED FOR UNKNOWN INDICATION
     Route: 065
  5. VOTRIENT [Suspect]
     Active Substance: PAZOPANIB HYDROCHLORIDE
     Dosage: 1 DF (200 MG), QD
     Route: 048
  6. VOTRIENT [Suspect]
     Active Substance: PAZOPANIB HYDROCHLORIDE
     Dosage: 2 DF (400 MG), QD
     Route: 065
  7. LOSARTAN. [Suspect]
     Active Substance: LOSARTAN
     Indication: PRODUCT USED FOR UNKNOWN INDICATION
     Route: 065
  8. VALPROIC ACID. [Concomitant]
     Active Substance: VALPROIC ACID
     Indication: PRODUCT USED FOR UNKNOWN INDICATION
     Dosage: UNK
     Route: 065
  9. VOTRIENT [Suspect]
     Active Substance: PAZOPANIB HYDROCHLORIDE
     Indication: RENAL CELL CARCINOMA
     Dosage: 2 DF (400 MG), BID
     Route: 048
     Dates: start: 20170201
  10. AMLODIPINE [Suspect]
     Active Substance: AMLODIPINE BESYLATE
     Indication: PRODUCT USED FOR UNKNOWN INDICATION
     Route: 065

REACTIONS (22)
  - Inflammatory pain [Unknown]
  - Oropharyngeal pain [Unknown]
  - Metastatic renal cell carcinoma [Unknown]
  - Myocardial infarction [Unknown]
  - Gingival disorder [Unknown]
  - Finger deformity [Unknown]
  - Skin burning sensation [Unknown]
  - Weight decreased [Unknown]
  - Rash [Unknown]
  - Tooth disorder [Unknown]
  - Gingival pain [Unknown]
  - Pain [Unknown]
  - Malaise [Unknown]
  - Death [Fatal]
  - Purulent discharge [Unknown]
  - Mobility decreased [Unknown]
  - Hypertension [Unknown]
  - Gastrointestinal disorder [Unknown]
  - Gastrooesophageal reflux disease [Unknown]
  - Decreased appetite [Unknown]
  - Gingival abscess [Unknown]
  - Eating disorder [Unknown]

NARRATIVE: CASE EVENT DATE: 20170209
